FAERS Safety Report 10186106 (Version 1)
Quarter: 2014Q2

REPORT INFORMATION
  Report Type: Spontaneous
  Country: BR (occurrence: BR)
  Receive Date: 20140521
  Receipt Date: 20140521
  Transmission Date: 20141212
  Serious: Yes (Other)
  Sender: FDA-Public Use
  Company Number: BR-ELI_LILLY_AND_COMPANY-BR201405005203

PATIENT
  Sex: Female

DRUGS (15)
  1. HUMULIN 70N/30R [Suspect]
     Indication: TYPE 2 DIABETES MELLITUS
     Dosage: UNK, UNKNOWN
     Route: 058
  2. HUMULIN 70N/30R [Suspect]
     Dosage: UNK, BID
     Route: 058
  3. HUMULIN 70N/30R [Suspect]
     Dosage: UNK, TID
     Route: 058
  4. HUMULIN 70N/30R [Suspect]
     Dosage: UNK, TID
     Route: 058
  5. METFORMINA                         /00082701/ [Concomitant]
     Indication: DIABETES MELLITUS
     Dosage: 850 MG, TID
     Route: 065
  6. CARDILOL                           /00984501/ [Concomitant]
     Indication: BLOOD PRESSURE
     Dosage: 0.25 MG, BID
     Route: 065
  7. AMLODIPIN                          /00972401/ [Concomitant]
     Indication: CARDIAC DISORDER
     Dosage: 5 MG, BID
     Route: 065
  8. HIDROCLOROTIAZIDA [Concomitant]
     Indication: CARDIAC DISORDER
     Dosage: 2.5 MG, BID
     Route: 065
  9. OMEPRAZOL                          /00661201/ [Concomitant]
     Indication: BLOOD CHOLESTEROL
     Dosage: 20 MG, BID
     Route: 065
  10. GABAPENTINA [Concomitant]
     Indication: RELAXATION THERAPY
     Dosage: 300 MG, QD
     Route: 065
  11. CLONAZEPAM [Concomitant]
     Indication: RELAXATION THERAPY
     Dosage: 0.5 MG, QD
     Route: 065
  12. VITAMIN C                          /00008001/ [Concomitant]
     Indication: PRODUCT USED FOR UNKNOWN INDICATION
     Dosage: UNK, UNKNOWN
     Route: 065
  13. VITAMINA D [Concomitant]
     Indication: PRODUCT USED FOR UNKNOWN INDICATION
     Dosage: UNK, UNKNOWN
     Route: 065
  14. FERRO                              /00198301/ [Concomitant]
     Indication: PRODUCT USED FOR UNKNOWN INDICATION
     Dosage: UNK, UNKNOWN
     Route: 065
  15. LOSARTAN [Concomitant]
     Indication: CARDIAC DISORDER
     Dosage: 50 MG, BID
     Route: 065

REACTIONS (6)
  - Hyperglycaemia [Not Recovered/Not Resolved]
  - Irritability [Unknown]
  - Emotional disorder [Unknown]
  - Drug ineffective [Unknown]
  - Hypoglycaemia [Unknown]
  - Blood glucose increased [Not Recovered/Not Resolved]
